FAERS Safety Report 6991702-1 (Version None)
Quarter: 2010Q3

REPORT INFORMATION
  Report Type: 
  Country: None (occurrence: None)
  Receive Date: 20100917
  Receipt Date: 20100908
  Transmission Date: 20110219
  Serious: Yes (Hospitalization, Other)
  Sender: FDA-Public Use
  Company Number: PHHY2010CA59555

PATIENT
  Sex: Male

DRUGS (1)
  1. SANDOSTATIN LAR [Suspect]
     Indication: MENINGIOMA MALIGNANT
     Dosage: 30 MG EVERY 4 WEEKS
     Route: 030
     Dates: start: 20100730

REACTIONS (1)
  - MALAISE [None]
